FAERS Safety Report 7427721-0 (Version None)
Quarter: 2011Q1

REPORT INFORMATION
  Report Type: 
  Country: None (occurrence: None)
  Receive Date: 20110302
  Receipt Date: 20110107
  Transmission Date: 20110831
  Serious: No
  Sender: FDA-Public Use
  Company Number: 025122

PATIENT
  Sex: Female
  Weight: 51.2565 kg

DRUGS (2)
  1. CIMZIA [Suspect]
     Indication: CROHN'S DISEASE
     Dosage: 2 SHOTS SUBCUTANEOUS
     Route: 058
     Dates: start: 20100501, end: 20101206
  2. OMEPRAZOLE [Concomitant]

REACTIONS (3)
  - RASH [None]
  - FUNGAL INFECTION [None]
  - ECZEMA [None]
